FAERS Safety Report 10097681 (Version 1)
Quarter: 2014Q2

REPORT INFORMATION
  Report Type: Spontaneous
  Country: US (occurrence: US)
  Receive Date: 20140423
  Receipt Date: 20140423
  Transmission Date: 20141212
  Serious: No
  Sender: FDA-Public Use
  Company Number: US-BIOGENIDEC-2014BI034490

PATIENT
  Age: 36 Year
  Sex: Female
  Weight: 94 kg

DRUGS (8)
  1. TECFIDERA [Suspect]
     Indication: MULTIPLE SCLEROSIS
     Route: 048
  2. TECFIDERA [Suspect]
     Indication: MULTIPLE SCLEROSIS
     Route: 048
  3. VITAMIN D3 [Concomitant]
  4. VITAMIN B12 [Concomitant]
  5. NUVIGIL [Concomitant]
  6. PERCOCET [Concomitant]
  7. HYDROCHLOROT [Concomitant]
  8. HYDROCO/APAP [Concomitant]

REACTIONS (11)
  - Headache [Unknown]
  - Pain in extremity [Unknown]
  - Menstruation delayed [Unknown]
  - Muscle spasms [Unknown]
  - Back pain [Unknown]
  - Rhinorrhoea [Unknown]
  - Chills [Unknown]
  - Fatigue [Unknown]
  - Asthenia [Unknown]
  - Body temperature increased [Unknown]
  - Abdominal pain upper [Unknown]
